FAERS Safety Report 19723778 (Version 1)
Quarter: 2021Q3

REPORT INFORMATION
  Report Type: Spontaneous
  Country: US (occurrence: US)
  Receive Date: 20210819
  Receipt Date: 20210819
  Transmission Date: 20211014
  Serious: Yes (Hospitalization, Disabling, Other)
  Sender: FDA-Public Use
  Company Number: US-PURDUE-USA-2021-0281998

PATIENT
  Sex: Male

DRUGS (1)
  1. OXYCONTIN [Suspect]
     Active Substance: OXYCODONE HYDROCHLORIDE
     Indication: PAIN
     Dosage: UNKNOWN
     Route: 048

REACTIONS (28)
  - Lung disorder [Unknown]
  - Fall [Unknown]
  - Cardiac operation [Unknown]
  - Gangrene [Unknown]
  - Hepatic cirrhosis [Unknown]
  - Drug dependence [Unknown]
  - Alopecia [Unknown]
  - Disability [Unknown]
  - Septic pulmonary embolism [Unknown]
  - Abscess [Unknown]
  - Clostridium difficile colitis [Unknown]
  - Oxygen therapy [Unknown]
  - Renal failure [Unknown]
  - Heart valve replacement [Unknown]
  - Cerebrovascular accident [Unknown]
  - Staphylococcal sepsis [Unknown]
  - Fatigue [Unknown]
  - Endocarditis [Unknown]
  - Rheumatoid arthritis [Unknown]
  - Overdose [Unknown]
  - Coma [Unknown]
  - Loss of consciousness [Unknown]
  - Emotional distress [Unknown]
  - Respiratory therapy [Unknown]
  - Gait inability [Unknown]
  - Toe amputation [Unknown]
  - Hepatitis C [Unknown]
  - Dialysis [Unknown]
